FAERS Safety Report 6029528-8 (Version None)
Quarter: 2009Q1

REPORT INFORMATION
  Report Type: 
  Country: None (occurrence: None)
  Receive Date: 20090107
  Receipt Date: 20081229
  Transmission Date: 20090719
  Serious: Yes (Hospitalization)
  Sender: FDA-Public Use
  Company Number: FR-JNJFOC-20081206676

PATIENT
  Sex: Female

DRUGS (7)
  1. DURAGESIC-100 [Suspect]
     Indication: PAIN
     Route: 062
  2. LYRICA [Suspect]
     Indication: PAIN
     Route: 048
  3. URBANYL [Suspect]
     Indication: ANXIETY
     Route: 048
  4. COAPROVEL [Concomitant]
     Indication: HYPERTENSION
     Dosage: 150/12.5MG
     Route: 048
  5. HYDROCORTISONE [Concomitant]
     Indication: VITAMIN SUPPLEMENTATION
     Route: 065
  6. CACIT VITAMINE D3 [Concomitant]
     Indication: VITAMIN SUPPLEMENTATION
     Route: 065
  7. TRANSULOSE [Concomitant]
     Indication: CONSTIPATION
     Route: 065

REACTIONS (1)
  - FALL [None]
